FAERS Safety Report 9614941 (Version 2)
Quarter: 2013Q4

REPORT INFORMATION
  Report Type: Spontaneous
  Country: US (occurrence: US)
  Receive Date: 20131011
  Receipt Date: 20131021
  Transmission Date: 20140711
  Serious: No
  Sender: FDA-Public Use
  Company Number: US-PFIZER INC-2013289158

PATIENT
  Age: 70 Year
  Sex: Female

DRUGS (12)
  1. XELJANZ [Suspect]
     Indication: RHEUMATOID ARTHRITIS
     Dosage: 5 MG, 2X/DAY
     Route: 048
  2. SPIRIVA [Concomitant]
     Dosage: UNK
  3. PREDNISONE [Concomitant]
     Dosage: UNK
  4. POTASSIUM [Concomitant]
     Dosage: UNK
  5. OXYCONTIN [Concomitant]
     Dosage: UNK
  6. NITROGLYCERIN SR [Concomitant]
     Dosage: UNK
  7. FUROSEMIDE [Concomitant]
     Dosage: UNK
  8. PLAQUENIL [Concomitant]
     Dosage: UNK
  9. NEXIUM [Concomitant]
     Dosage: UNK
  10. CALCIUM 500 [Concomitant]
     Dosage: UNK
  11. ATORVASTATIN CALCIUM [Concomitant]
     Dosage: UNK
  12. METHOTREXATE [Concomitant]
     Dosage: UNK

REACTIONS (1)
  - Pruritus [Unknown]
